FAERS Safety Report 13686116 (Version 1)
Quarter: 2017Q2

REPORT INFORMATION
  Report Type: Spontaneous
  Country: US (occurrence: US)
  Receive Date: 20170623
  Receipt Date: 20170623
  Transmission Date: 20170830
  Serious: Yes (Hospitalization)
  Sender: FDA-Public Use
  Company Number: US-ROCHE-1073978

PATIENT
  Age: 40 Year
  Sex: Male

DRUGS (28)
  1. ASPIRIN. [Concomitant]
     Active Substance: ASPIRIN
  2. PREDNISONE. [Concomitant]
     Active Substance: PREDNISONE
  3. FLOMAX [Concomitant]
     Active Substance: TAMSULOSIN HYDROCHLORIDE
  4. COLACE [Concomitant]
     Active Substance: DOCUSATE SODIUM
  5. MARINOL [Concomitant]
     Active Substance: DRONABINOL
  6. FOLATE [Concomitant]
     Active Substance: FOLATE SODIUM
  7. ARANESP [Concomitant]
     Active Substance: DARBEPOETIN ALFA
  8. NOVOLOG [Concomitant]
     Active Substance: INSULIN ASPART
  9. PRILOSEC [Concomitant]
     Active Substance: OMEPRAZOLE MAGNESIUM
  10. COUMADIN [Concomitant]
     Active Substance: WARFARIN SODIUM
  11. CELLCEPT [Suspect]
     Active Substance: MYCOPHENOLATE MOFETIL\MYCOPHENOLATE MOFETIL HYDROCHLORIDE
     Indication: PRODUCT USED FOR UNKNOWN INDICATION
  12. SOLIRIS [Suspect]
     Active Substance: ECULIZUMAB
     Route: 065
  13. PROSCAR [Concomitant]
     Active Substance: FINASTERIDE
  14. FLORINEF ACETATE [Concomitant]
     Active Substance: FLUDROCORTISONE ACETATE
  15. KYTRIL [Concomitant]
     Active Substance: GRANISETRON HYDROCHLORIDE
  16. LIDODERM [Concomitant]
     Active Substance: LIDOCAINE
  17. SOLIRIS [Suspect]
     Active Substance: ECULIZUMAB
     Indication: ANTIPHOSPHOLIPID SYNDROME
     Route: 065
     Dates: start: 201002
  18. DILAUDID [Concomitant]
     Active Substance: HYDROMORPHONE HYDROCHLORIDE
  19. DOLOPHINE [Concomitant]
     Active Substance: METHADONE HYDROCHLORIDE
  20. TUMS [Concomitant]
     Active Substance: CALCIUM CARBONATE
  21. CLARITIN [Concomitant]
     Active Substance: LORATADINE
  22. REGLAN [Concomitant]
     Active Substance: METOCLOPRAMIDE HYDROCHLORIDE
  23. PROGRAF [Concomitant]
     Active Substance: TACROLIMUS\TACROLIMUS ANHYDROUS
  24. ALLOPURINOL. [Concomitant]
     Active Substance: ALLOPURINOL
  25. TOPROL XL [Concomitant]
     Active Substance: METOPROLOL SUCCINATE
  26. PROAMANTINE [Concomitant]
  27. ZOFRAN [Concomitant]
     Active Substance: ONDANSETRON HYDROCHLORIDE
  28. SENOKOT [Concomitant]
     Active Substance: SENNOSIDES

REACTIONS (2)
  - Bronchopulmonary aspergillosis [Unknown]
  - Herpes zoster [Unknown]

NARRATIVE: CASE EVENT DATE: 201012
